FAERS Safety Report 4667950-2 (Version None)
Quarter: 2005Q2

REPORT INFORMATION
  Report Type: 
  Country: None (occurrence: None)
  Receive Date: 20050520
  Receipt Date: 20041208
  Transmission Date: 20051028
  Serious: Yes (Other)
  Sender: FDA-Public Use
  Company Number: PHEH2004US13133

PATIENT
  Age: 55 Year
  Sex: Male

DRUGS (7)
  1. ZOMETA [Suspect]
     Indication: MULTIPLE MYELOMA
     Dosage: 4 MG EVERY 4 WEEKS
     Dates: start: 20020625, end: 20040518
  2. VELCADE [Concomitant]
     Indication: MULTIPLE MYELOMA
     Dosage: 1.3 MG/M2 21 DAY CYCLEUNK, UNK
     Dates: start: 20030718, end: 20031107
  3. DEXAMETHASONE [Suspect]
     Indication: MULTIPLE MYELOMA
     Dosage: 20 MG ON D1,2,4,5,8,9,11,12
     Dates: start: 20030718, end: 20031107
  4. NEUPOGEN [Concomitant]
     Indication: NEUTROPENIA
     Dosage: 400 MEQ, QD
     Dates: start: 20040520, end: 20040810
  5. RIBOMED [Suspect]
     Indication: MULTIPLE MYELOMA
     Dosage: 20 MG, QD
     Dates: start: 20040406, end: 20040727
  6. PREDNISONE [Suspect]
     Indication: MULTIPLE MYELOMA
     Dosage: 10 MG, QD
     Dates: start: 20040406, end: 20040727
  7. ARANESP [Suspect]
     Indication: ANAEMIA
     Dosage: 200 MEQ, PRN
     Dates: start: 20030715

REACTIONS (7)
  - ACTINOMYCOSIS [None]
  - INFECTION [None]
  - MANDIBULECTOMY [None]
  - OSTEOMYELITIS [None]
  - OSTEONECROSIS [None]
  - TOOTH EXTRACTION [None]
  - WOUND DEBRIDEMENT [None]
